FAERS Safety Report 23136027 (Version 2)
Quarter: 2023Q4

REPORT INFORMATION
  Report Type: Spontaneous
  Country: IT (occurrence: IT)
  Receive Date: 20231102
  Receipt Date: 20231128
  Transmission Date: 20240110
  Serious: Yes (Other)
  Sender: FDA-Public Use
  Company Number: IT-AMGEN-ITASP2023192429

PATIENT

DRUGS (2)
  1. ADALIMUMAB [Suspect]
     Active Substance: ADALIMUMAB\ISOPROPYL ALCOHOL
     Indication: Rheumatoid arthritis
     Dosage: UNK
     Route: 065
  2. ADALIMUMAB [Suspect]
     Active Substance: ADALIMUMAB\ISOPROPYL ALCOHOL
     Indication: Psoriasis

REACTIONS (9)
  - Rheumatoid arthritis [Unknown]
  - Uveitis [Unknown]
  - Adverse drug reaction [Unknown]
  - Drug intolerance [Unknown]
  - Toxicity to various agents [Unknown]
  - General physical health deterioration [Unknown]
  - Drug hypersensitivity [Unknown]
  - Therapy non-responder [Unknown]
  - Psoriasis [Unknown]
